FAERS Safety Report 5948038-7 (Version None)
Quarter: 2008Q4

REPORT INFORMATION
  Report Type: 
  Country: None (occurrence: None)
  Receive Date: 20081111
  Receipt Date: 20081103
  Transmission Date: 20090506
  Serious: Yes (Hospitalization)
  Sender: FDA-Public Use
  Company Number: US-WYE-H06250308

PATIENT
  Age: 54 Year
  Sex: Female

DRUGS (2)
  1. TEMSIROLIMUS [Suspect]
     Indication: BILE DUCT CANCER
     Dosage: 25MG AT UNKNOWN FREQUENCY  X6 DOSES
     Route: 042
     Dates: start: 20080808, end: 20080926
  2. DOCETAXEL [Suspect]
     Indication: BILE DUCT CANCER
     Dosage: 92MG, 69MG, 69MG AT UNKNOWN FREQUENCY (3 DOSES TOTAL)
     Route: 042
     Dates: start: 20080808, end: 20080919

REACTIONS (1)
  - PLEURAL EFFUSION [None]
